FAERS Safety Report 18079677 (Version 1)
Quarter: 2020Q3

REPORT INFORMATION
  Report Type: Spontaneous
  Country: SE (occurrence: SE)
  Receive Date: 20200728
  Receipt Date: 20200728
  Transmission Date: 20201103
  Serious: Yes (Hospitalization, Other)
  Sender: FDA-Public Use
  Company Number: SE-PFIZER INC-2020282512

PATIENT
  Age: 9 Week
  Sex: Male

DRUGS (2)
  1. ROTARIX [Suspect]
     Active Substance: HUMAN ROTAVIRUS A TYPE G1P(8) STRAIN RIX4414 LIVE ANTIGEN
     Indication: IMMUNISATION
     Dosage: 1.5 ML
     Route: 048
     Dates: start: 20200528, end: 20200528
  2. ZESSLY [Suspect]
     Active Substance: INFLIXIMAB
     Indication: EXPOSURE VIA BREAST MILK
     Dosage: UNK
     Route: 063

REACTIONS (2)
  - Exposure via breast milk [Recovered/Resolved]
  - Gastroenteritis rotavirus [Recovered/Resolved]

NARRATIVE: CASE EVENT DATE: 20200530
